FAERS Safety Report 4519473-9 (Version None)
Quarter: 2004Q4

REPORT INFORMATION
  Report Type: 
  Country: None (occurrence: None)
  Receive Date: 20041202
  Receipt Date: 20041118
  Transmission Date: 20050328
  Serious: Yes (Hospitalization)
  Sender: FDA-Public Use
  Company Number: 2004SE05860

PATIENT
  Age: 78 Year
  Sex: Female

DRUGS (1)
  1. BLOPRESS [Suspect]
     Indication: HYPERTENSION
     Dosage: 4-8 MG
     Dates: start: 20010101, end: 20041001

REACTIONS (2)
  - INTERSTITIAL LUNG DISEASE [None]
  - NASOPHARYNGITIS [None]
